FAERS Safety Report 6541739-1 (Version None)
Quarter: 2010Q1

REPORT INFORMATION
  Report Type: 
  Country: None (occurrence: None)
  Receive Date: 20100119
  Receipt Date: 20100107
  Transmission Date: 20100710
  Serious: Yes (Hospitalization)
  Sender: FDA-Public Use
  Company Number: US-SANOFI-AVENTIS-2010SA000910

PATIENT
  Age: 63 Year
  Sex: Male
  Weight: 108 kg

DRUGS (3)
  1. BLINDED THERAPY [Suspect]
     Route: 042
     Dates: start: 20091210, end: 20091210
  2. DOCETAXEL [Suspect]
     Route: 042
     Dates: start: 20091210, end: 20091210
  3. PREDNISONE [Suspect]
     Route: 048
     Dates: start: 20091210, end: 20091210

REACTIONS (2)
  - FISTULA [None]
  - RECTOURETHRAL FISTULA [None]
